FAERS Safety Report 8202566-2 (Version None)
Quarter: 2012Q1

REPORT INFORMATION
  Report Type: 
  Country: None (occurrence: None)
  Receive Date: 20120312
  Receipt Date: 20120307
  Transmission Date: 20120608
  Serious: Yes (Life-Threatening, Hospitalization)
  Sender: FDA-Public Use
  Company Number: PHHY2012GB019687

PATIENT
  Age: 75 Year
  Sex: Male

DRUGS (1)
  1. AMIODARONE HCL [Suspect]

REACTIONS (6)
  - ASPERGILLOSIS [None]
  - CANDIDIASIS [None]
  - ACUTE LUNG INJURY [None]
  - PULMONARY FIBROSIS [None]
  - MALAISE [None]
  - ACUTE RESPIRATORY DISTRESS SYNDROME [None]
